FAERS Safety Report 10201087 (Version 1)
Quarter: 2014Q2

REPORT INFORMATION
  Report Type: Spontaneous
  Country: US (occurrence: US)
  Receive Date: 20140528
  Receipt Date: 20140528
  Transmission Date: 20141212
  Serious: No
  Sender: FDA-Public Use
  Company Number: US-BAUSCH-BL-2014-000198

PATIENT
  Age: 34 Year
  Sex: Male

DRUGS (4)
  1. FLUOCINOLONE ACETONIDE INTRAVITREAL IMPLANT (0.5 MG) [Suspect]
     Indication: UVEITIS
     Dosage: UNKNOWN
     Route: 047
     Dates: start: 2001
  2. DUREZOL [Concomitant]
     Indication: PRODUCT USED FOR UNKNOWN INDICATION
     Dosage: OU
     Route: 065
  3. PREDNISONE [Concomitant]
     Indication: PRODUCT USED FOR UNKNOWN INDICATION
     Dosage: EVERY OTHER DAY
     Route: 048
  4. HOMATROPINE [Concomitant]
     Indication: PRODUCT USED FOR UNKNOWN INDICATION
     Dosage: OU
     Route: 065

REACTIONS (2)
  - Device dislocation [Not Recovered/Not Resolved]
  - Vitreous floaters [Not Recovered/Not Resolved]
